FAERS Safety Report 10580367 (Version 1)
Quarter: 2014Q4

REPORT INFORMATION
  Report Type: Spontaneous
  Country: US (occurrence: US)
  Receive Date: 20141112
  Receipt Date: 20141112
  Transmission Date: 20150529
  Serious: No
  Sender: FDA-Public Use
  Company Number: US-B.I. PHARMACEUTICALS,INC./RIDGEFIELD-2014-BI-52859BP

PATIENT
  Age: 71 Year
  Sex: Male
  Weight: 122.47 kg

DRUGS (2)
  1. PRADAXA [Suspect]
     Active Substance: DABIGATRAN ETEXILATE MESYLATE
     Indication: ATRIAL FIBRILLATION
     Dosage: 300 MG
     Route: 048
     Dates: start: 201405
  2. PRADAXA [Suspect]
     Active Substance: DABIGATRAN ETEXILATE MESYLATE
     Dosage: 450 MG
     Route: 048
     Dates: start: 20141102

REACTIONS (2)
  - Overdose [Unknown]
  - Laceration [Recovered/Resolved]

NARRATIVE: CASE EVENT DATE: 20141102
